FAERS Safety Report 5145046-3 (Version None)
Quarter: 2006Q4

REPORT INFORMATION
  Report Type: 
  Country: None (occurrence: None)
  Receive Date: 20061107
  Receipt Date: 20061027
  Transmission Date: 20070319
  Serious: Yes (Hospitalization)
  Sender: FDA-Public Use
  Company Number: FR-GLAXOSMITHKLINE-B0444602A

PATIENT
  Age: 53 Year
  Sex: Female
  Weight: 61 kg

DRUGS (14)
  1. RETROVIR [Suspect]
     Indication: HIV INFECTION
     Dosage: 250MG TWICE PER DAY
     Route: 048
     Dates: end: 20061004
  2. TELZIR [Suspect]
     Indication: HIV INFECTION
     Dosage: 700MG TWICE PER DAY
     Route: 048
     Dates: start: 20060721, end: 20061004
  3. PYRIMETHAMINE TAB [Suspect]
     Indication: TOXOPLASMOSIS
     Dosage: 50MG PER DAY
     Route: 048
     Dates: start: 20060804, end: 20061004
  4. VIDEX [Suspect]
     Indication: HIV INFECTION
     Dosage: 250MG PER DAY
     Route: 048
     Dates: start: 20060721, end: 20061004
  5. PENTACARINAT [Suspect]
     Dosage: 300MG MONTHLY
     Route: 055
     Dates: start: 20060804, end: 20061004
  6. VALGANCICLOVIR HYDROCHLORIDE [Suspect]
     Indication: CYTOMEGALOVIRUS INFECTION
     Dosage: 450MG PER DAY
     Route: 048
     Dates: start: 20060721, end: 20061004
  7. ATOVAQUONE [Concomitant]
     Route: 065
     Dates: start: 20060721, end: 20060804
  8. CETIRIZINE HCL [Concomitant]
     Route: 065
     Dates: start: 20060721, end: 20060808
  9. IBUPROFEN [Concomitant]
     Indication: HEADACHE
     Route: 065
     Dates: start: 20060721, end: 20060808
  10. PANTOPRAZOLE SODIUM [Concomitant]
     Route: 065
     Dates: start: 20060721, end: 20060808
  11. LEDERFOLIN [Concomitant]
     Route: 065
     Dates: start: 20060804
  12. POLARAMINE [Concomitant]
     Route: 065
     Dates: start: 20060808
  13. LAROXYL [Concomitant]
     Indication: HEADACHE
     Route: 065
     Dates: start: 20060808
  14. RUBOZINC [Concomitant]
     Indication: ALOPECIA
     Route: 065
     Dates: start: 20060830

REACTIONS (6)
  - ALOPECIA [None]
  - APLASTIC ANAEMIA [None]
  - DYSPNOEA [None]
  - HEADACHE [None]
  - NORMOCHROMIC NORMOCYTIC ANAEMIA [None]
  - RASH [None]
